FAERS Safety Report 7752167-5 (Version None)
Quarter: 2011Q3

REPORT INFORMATION
  Report Type: 
  Country: None (occurrence: None)
  Receive Date: 20110915
  Receipt Date: 20110912
  Transmission Date: 20111222
  Serious: No
  Sender: FDA-Public Use
  Company Number: US-PFIZER INC-2011178719

PATIENT
  Sex: Female
  Weight: 65.76 kg

DRUGS (6)
  1. VAGIFEM [Suspect]
     Indication: VULVOVAGINAL DRYNESS
     Dosage: 10 UG, UNK
     Route: 067
     Dates: start: 20110101, end: 20110725
  2. SYNTHROID [Concomitant]
     Indication: HYPOTHYROIDISM
     Dosage: 0.05 MG, UNK
  3. ZYRTEC [Concomitant]
     Indication: HYPERSENSITIVITY
     Dosage: UNK
  4. PREMARIN [Suspect]
     Indication: VULVOVAGINAL DRYNESS
     Dosage: 1 MG, UNK FREQUENCY, OFF AND ON
     Route: 067
     Dates: start: 20110101, end: 20110902
  5. ZOCOR [Concomitant]
     Indication: BLOOD CHOLESTEROL INCREASED
     Dosage: 10 MG, UNK
  6. PREMARIN [Suspect]
     Indication: MENOPAUSE
     Dosage: UNK
     Route: 067
     Dates: end: 20110902

REACTIONS (4)
  - VAGINAL DISCHARGE [None]
  - VULVOVAGINAL BURNING SENSATION [None]
  - VULVOVAGINAL PRURITUS [None]
  - VULVOVAGINAL DISCOMFORT [None]
